FAERS Safety Report 6124131-3 (Version None)
Quarter: 2009Q1

REPORT INFORMATION
  Report Type: 
  Country: None (occurrence: None)
  Receive Date: 20090318
  Receipt Date: 20090318
  Transmission Date: 20090719
  Serious: Yes (Life-Threatening, Hospitalization, Other)
  Sender: FDA-Public Use
  Company Number: None

PATIENT
  Age: 36 Year
  Sex: Male
  Weight: 79.3795 kg

DRUGS (3)
  1. BUPROPION HCL [Suspect]
     Indication: MAJOR DEPRESSION
     Dosage: 150MGS 1 TIMES A DAY PO
     Route: 048
     Dates: start: 20081011, end: 20081016
  2. BUPROPION HCL [Suspect]
     Indication: POST-TRAUMATIC STRESS DISORDER
     Dosage: 150MGS 1 TIMES A DAY PO
     Route: 048
     Dates: start: 20081011, end: 20081016
  3. WELLBUTRIN XL [Suspect]

REACTIONS (5)
  - AGGRESSION [None]
  - AMNESIA [None]
  - DELIRIUM [None]
  - GRAND MAL CONVULSION [None]
  - PRODUCT QUALITY ISSUE [None]
